FAERS Safety Report 10781251 (Version 2)
Quarter: 2015Q2

REPORT INFORMATION
  Report Type: Spontaneous
  Country: IT (occurrence: IT)
  Receive Date: 20150210
  Receipt Date: 20150511
  Transmission Date: 20150821
  Serious: Yes (Death)
  Sender: FDA-Public Use
  Company Number: IT-SA-2015SA013277

PATIENT
  Age: 80 Year
  Sex: Female
  Weight: 80 kg

DRUGS (13)
  1. CLEXANE T [Suspect]
     Active Substance: ENOXAPARIN SODIUM
     Indication: PULMONARY INFARCTION
     Route: 058
     Dates: start: 20141127, end: 20141129
  2. PANTOPRAZOLE [Concomitant]
     Active Substance: PANTOPRAZOLE SODIUM
     Dosage: 20 HOURS.
  3. SEROQUEL [Concomitant]
     Active Substance: QUETIAPINE FUMARATE
     Indication: DEMENTIA
     Dosage: 25 MG FILM COATED TABLET^ 30 TABLETS; I TABLET 20 HOURS.
     Route: 048
     Dates: start: 20141114, end: 20141130
  4. TRITTICO [Concomitant]
     Active Substance: TRAZODONE HYDROCHLORIDE
     Indication: DEPRESSION
     Dosage: 25 MG/ML ORAL DROPS, SOLUTION^ VIAL 30 ML, 20 DROPS DROPS 3 TIMES A DAY.
     Route: 048
     Dates: start: 20141001, end: 20141130
  5. CLEXANE T [Suspect]
     Active Substance: ENOXAPARIN SODIUM
     Indication: PULMONARY EMBOLISM
     Route: 058
     Dates: start: 20141127, end: 20141129
  6. VASCOMAN [Concomitant]
     Active Substance: MANIDIPINE HYDROCHLORIDE
  7. MIRTAZAPINE. [Concomitant]
     Active Substance: MIRTAZAPINE
     Indication: DEPRESSION
     Dosage: 15 DROPS 20 HRS.
     Route: 048
     Dates: start: 20140701, end: 20141130
  8. DELTACORTENE [Concomitant]
     Active Substance: PREDNISONE
     Indication: CHRONIC OBSTRUCTIVE PULMONARY DISEASE
     Dosage: 25 MG TABLETS ^10 TABLETS
     Route: 048
     Dates: start: 20141001, end: 20141130
  9. COUMADIN [Suspect]
     Active Substance: WARFARIN SODIUM
     Indication: PULMONARY EMBOLISM
     Dosage: FORM: DIVISIBLE TABLET
     Route: 048
     Dates: start: 20141125, end: 20141130
  10. CLEXANE T [Suspect]
     Active Substance: ENOXAPARIN SODIUM
     Indication: PULMONARY EMBOLISM
     Route: 058
     Dates: start: 20141124, end: 20141126
  11. CLEXANE T [Suspect]
     Active Substance: ENOXAPARIN SODIUM
     Indication: PULMONARY INFARCTION
     Route: 058
     Dates: start: 20141124, end: 20141126
  12. COUMADIN [Suspect]
     Active Substance: WARFARIN SODIUM
     Indication: PULMONARY INFARCTION
     Dosage: FORM: DIVISIBLE TABLET
     Route: 048
     Dates: start: 20141125, end: 20141130
  13. EUTIROX [Concomitant]
     Active Substance: LEVOTHYROXINE SODIUM

REACTIONS (8)
  - Hypopnoea [Fatal]
  - Generalised tonic-clonic seizure [Fatal]
  - Agitation [Fatal]
  - Abdominal wall haematoma [Fatal]
  - Abdominal pain lower [Fatal]
  - Hypotension [Fatal]
  - Sopor [Fatal]
  - Haemoglobin decreased [Fatal]

NARRATIVE: CASE EVENT DATE: 20141129
